FAERS Safety Report 25684979 (Version 1)
Quarter: 2025Q3

REPORT INFORMATION
  Report Type: Spontaneous
  Country: TH (occurrence: TH)
  Receive Date: 20250815
  Receipt Date: 20250815
  Transmission Date: 20251020
  Serious: Yes (Other)
  Sender: ASTELLAS
  Company Number: TH-ASTELLAS-2025-AER-043797

PATIENT
  Age: 61 Year
  Sex: Male

DRUGS (4)
  1. TACROLIMUS [Suspect]
     Active Substance: TACROLIMUS
     Indication: Renal transplant
     Dosage: STABLE, ON -6, -5, -4, -3, -2, -1, 0 AND 1 DAYS OF OPERATION
     Route: 065
  2. TACROLIMUS [Suspect]
     Active Substance: TACROLIMUS
     Dosage: ON 2 DAY OF OPERATION, STOPPED
     Route: 065
  3. TACROLIMUS [Suspect]
     Active Substance: TACROLIMUS
     Dosage: ON 6 DAY OF OPERATION, RESUMED
     Route: 065
  4. TACROLIMUS [Suspect]
     Active Substance: TACROLIMUS
     Dosage: ON 7 DAY OF OPERATION
     Route: 065

REACTIONS (4)
  - Hepatocellular carcinoma [Unknown]
  - Toxicity to various agents [Recovering/Resolving]
  - Neurotoxicity [Recovering/Resolving]
  - Nephropathy toxic [Recovering/Resolving]
